FAERS Safety Report 8833115 (Version 1)
Quarter: 2012Q4

REPORT INFORMATION
  Report Type: 
  Country: BR (occurrence: BR)
  Receive Date: 20121010
  Receipt Date: 20121010
  Transmission Date: 20130627
  Serious: Yes (Other)
  Sender: FDA-Public Use
  Company Number: BR-JNJFOC-20121002082

PATIENT
  Age: 81 Year
  Sex: Female
  Weight: 70 kg

DRUGS (5)
  1. TYLEX [Suspect]
     Indication: MUSCULOSKELETAL CHEST PAIN
     Dosage: 30 mg, 4 times a day
     Route: 048
     Dates: start: 20121001, end: 20121002
  2. VERAPAMIL [Concomitant]
     Indication: HYPERTENSION
     Route: 065
     Dates: start: 2004
  3. SOMALGIN [Concomitant]
     Indication: ISCHAEMIA
     Route: 065
     Dates: start: 2004
  4. UNKNOWN MEDICATION [Concomitant]
     Indication: OSTEOPOROSIS PROPHYLAXIS
     Route: 065
     Dates: start: 2002
  5. UNKNOWN MEDICATION [Concomitant]
     Indication: RETINAL HAEMORRHAGE
     Route: 065
     Dates: start: 201209

REACTIONS (6)
  - Convulsion [Recovered/Resolved]
  - Miosis [Recovered/Resolved]
  - Tremor [Recovered/Resolved]
  - Poisoning [Recovered/Resolved]
  - Skin discolouration [Recovered/Resolved]
  - Dizziness [Recovered/Resolved]
